FAERS Safety Report 9198606 (Version 1)
Quarter: 2013Q1

REPORT INFORMATION
  Report Type: Spontaneous
  Country: US (occurrence: None)
  Receive Date: 20130327
  Receipt Date: 20130327
  Transmission Date: 20140127
  Serious: Yes (Other)
  Sender: FDA-Public Use
  Company Number: None

PATIENT
  Age: 65 Year
  Sex: Female

DRUGS (1)
  1. FORTEO 20 MCG SQ DAILY LILLY [Suspect]
     Indication: OSTEOPOROSIS
     Dates: start: 20130213, end: 20130227

REACTIONS (4)
  - Arthralgia [None]
  - Muscle spasms [None]
  - Fatigue [None]
  - Somnolence [None]
